FAERS Safety Report 5978565-8 (Version None)
Quarter: 2008Q4

REPORT INFORMATION
  Report Type: 
  Country: None (occurrence: None)
  Receive Date: 20081204
  Receipt Date: 20081202
  Transmission Date: 20090506
  Serious: Yes (Other)
  Sender: FDA-Public Use
  Company Number: A0758724A

PATIENT

DRUGS (2)
  1. TREXIMET [Suspect]
     Indication: MIGRAINE
     Route: 048
  2. PROZAC [Suspect]
     Indication: DRUG USE FOR UNKNOWN INDICATION
     Route: 048

REACTIONS (4)
  - ANAEMIA [None]
  - FALL [None]
  - HAEMORRHAGE [None]
  - SEROTONIN SYNDROME [None]
